FAERS Safety Report 11625739 (Version 3)
Quarter: 2015Q4

REPORT INFORMATION
  Report Type: Spontaneous
  Country: AU (occurrence: AU)
  Receive Date: 20151013
  Receipt Date: 20151117
  Transmission Date: 20160304
  Serious: Yes (Other)
  Sender: FDA-Public Use
  Company Number: PHHY2015AU121772

PATIENT
  Sex: Male

DRUGS (2)
  1. RITALIN [Suspect]
     Active Substance: METHYLPHENIDATE HYDROCHLORIDE
     Indication: ATTENTION DEFICIT/HYPERACTIVITY DISORDER
     Dosage: 1 DF, UNK
     Route: 048
     Dates: start: 201508
  2. RITALIN [Suspect]
     Active Substance: METHYLPHENIDATE HYDROCHLORIDE
     Dosage: 1 DF, UNK
     Route: 048

REACTIONS (4)
  - Drug effect variable [Unknown]
  - Eye colour change [Recovered/Resolved]
  - Weight decreased [Recovered/Resolved]
  - Alopecia [Recovered/Resolved]
